FAERS Safety Report 8119090-8 (Version None)
Quarter: 2012Q1

REPORT INFORMATION
  Report Type: 
  Country: None (occurrence: None)
  Receive Date: 20120207
  Receipt Date: 20120203
  Transmission Date: 20120608
  Serious: Yes (Death)
  Sender: FDA-Public Use
  Company Number: BR-ROCHE-1014422

PATIENT
  Sex: Female
  Weight: 74 kg

DRUGS (7)
  1. PROPANOLOLI HYDROCHLORIDUM [Concomitant]
     Indication: HYPERTENSION
     Route: 048
     Dates: start: 20090101, end: 20111111
  2. EPOETIN ALFA [Concomitant]
     Indication: ANAEMIA
     Dosage: DOSE: 10000 UI
     Route: 058
     Dates: start: 20110919, end: 20111111
  3. COPEGUS [Suspect]
     Indication: HEPATITIS C
     Route: 048
     Dates: start: 20110520, end: 20111111
  4. METFORMIN HCL [Concomitant]
     Indication: DIABETES MELLITUS
     Route: 048
     Dates: start: 20090101, end: 20111111
  5. ACETAMINOPHEN [Concomitant]
     Indication: PAIN
     Dosage: IRREGULAR
     Route: 048
     Dates: start: 20110606, end: 20111111
  6. LOSARTAN POTASSIUM [Concomitant]
     Indication: HYPERTENSION
     Route: 048
     Dates: start: 20090101, end: 20111111
  7. PEGINTERFERON ALFA-2B [Suspect]
     Indication: HEPATITIS C
     Route: 058
     Dates: start: 20110520, end: 20111111

REACTIONS (4)
  - GASTROINTESTINAL HAEMORRHAGE [None]
  - MOTOR DYSFUNCTION [None]
  - LETHARGY [None]
  - HYPERTENSION [None]
